FAERS Safety Report 6765429-5 (Version None)
Quarter: 2010Q2

REPORT INFORMATION
  Report Type: 
  Country: None (occurrence: None)
  Receive Date: 20100611
  Receipt Date: 20100604
  Transmission Date: 20101027
  Serious: Yes (Other)
  Sender: FDA-Public Use
  Company Number: US-ASTRAZENECA-2008UW24466

PATIENT
  Age: 170 Month
  Sex: Female
  Weight: 122.5 kg

DRUGS (13)
  1. SEROQUEL [Suspect]
     Indication: AFFECTIVE DISORDER
     Dosage: 100 MG 2 X DAILY
     Route: 048
     Dates: start: 19990101, end: 20000101
  2. SEROQUEL [Suspect]
     Indication: SCHIZOPHRENIA
     Dosage: 100 MG 2 X DAILY
     Route: 048
     Dates: start: 19990101, end: 20000101
  3. RISPERDAL [Concomitant]
     Indication: SCHIZOPHRENIA
     Dates: start: 19990101, end: 20010101
  4. DEPAKOTE [Concomitant]
     Indication: SCHIZOPHRENIA
  5. DEPAKOTE [Concomitant]
     Indication: BIPOLAR DISORDER
  6. COGENTIN [Concomitant]
     Indication: BIPOLAR DISORDER
  7. ZOLOFT [Concomitant]
     Indication: DEPRESSION
  8. EFFEXOR [Concomitant]
     Indication: DEPRESSION
  9. ABILIFY [Concomitant]
  10. CLOZARIL [Concomitant]
     Dates: start: 20010101, end: 20010101
  11. HALDOL [Concomitant]
     Dates: start: 20000101, end: 20000101
  12. THORAZINE [Concomitant]
     Dates: start: 20000101, end: 20000101
  13. ZYPREXA [Concomitant]
     Dates: start: 19990101

REACTIONS (9)
  - DIABETES MELLITUS [None]
  - DIABETIC KETOACIDOSIS [None]
  - GALLBLADDER DISORDER [None]
  - OBESITY [None]
  - PANCREATITIS [None]
  - SUICIDE ATTEMPT [None]
  - THYROID DISORDER [None]
  - TYPE 2 DIABETES MELLITUS [None]
  - UTERINE LEIOMYOMA [None]
